FAERS Safety Report 5573994-9 (Version None)
Quarter: 2007Q4

REPORT INFORMATION
  Report Type: 
  Country: None (occurrence: None)
  Receive Date: 20071226
  Receipt Date: 20071220
  Transmission Date: 20080405
  Serious: Yes (Hospitalization)
  Sender: FDA-Public Use
  Company Number: FR-MERCK-0712FRA00087

PATIENT
  Age: 45 Year
  Sex: Female

DRUGS (3)
  1. CANCIDAS [Suspect]
     Indication: CANDIDIASIS
     Route: 041
     Dates: start: 20071016, end: 20071020
  2. VORICONAZOLE [Suspect]
     Indication: CANDIDIASIS
     Route: 048
     Dates: start: 20071012, end: 20071016
  3. VALPROATE SODIUM [Suspect]
     Indication: EPILEPSY
     Route: 048
     Dates: start: 20070930, end: 20071018

REACTIONS (3)
  - AGRANULOCYTOSIS [None]
  - PYREXIA [None]
  - RASH [None]
